FAERS Safety Report 18257382 (Version 3)
Quarter: 2020Q4

REPORT INFORMATION
  Report Type: Spontaneous
  Country: US (occurrence: US)
  Receive Date: 20200911
  Receipt Date: 20201008
  Transmission Date: 20210113
  Serious: Yes (Other)
  Sender: FDA-Public Use
  Company Number: US-ASTRAZENECA-2020SF05637

PATIENT
  Age: 126 Month
  Sex: Female
  Weight: 38.6 kg

DRUGS (1)
  1. SYMBICORT [Suspect]
     Active Substance: BUDESONIDE\FORMOTEROL FUMARATE DIHYDRATE
     Indication: ASTHMA
     Dosage: 80/4.5 MCG, TWO PUFFS TWICE A DAY
     Route: 055
     Dates: start: 20200806, end: 20200807

REACTIONS (4)
  - Swelling face [Recovered/Resolved]
  - Mouth swelling [Unknown]
  - Eye pain [Unknown]
  - Eye swelling [Recovered/Resolved]

NARRATIVE: CASE EVENT DATE: 202008
